FAERS Safety Report 12625313 (Version 1)
Quarter: 2016Q3

REPORT INFORMATION
  Report Type: Spontaneous
  Country: FR (occurrence: FR)
  Receive Date: 20160805
  Receipt Date: 20160805
  Transmission Date: 20161109
  Serious: Yes (Hospitalization)
  Sender: FDA-Public Use
  Company Number: FR-PFIZER INC-3021123

PATIENT
  Age: 60 Year
  Sex: Female

DRUGS (6)
  1. CARBOPLATIN KABI [Suspect]
     Active Substance: CARBOPLATIN
     Dosage: UNK UNK, CYCLIC (10 MG/ML)
     Route: 042
     Dates: start: 20131008, end: 20140212
  2. AVASTIN [Suspect]
     Active Substance: BEVACIZUMAB
     Indication: LUNG ADENOCARCINOMA
     Dosage: UNK UNK, CYCLIC (25 MG/ML)
     Route: 042
     Dates: start: 20131008, end: 20140212
  3. ALIMTA [Suspect]
     Active Substance: PEMETREXED DISODIUM
     Indication: LUNG ADENOCARCINOMA
     Dosage: UNK UNK, CYCLIC (500 MG)
     Route: 042
     Dates: start: 20130123, end: 20130327
  4. CARBOPLATIN KABI [Suspect]
     Active Substance: CARBOPLATIN
     Indication: LUNG ADENOCARCINOMA
     Dosage: UNK UNK, CYCLIC (10 MG/ML)
     Route: 042
     Dates: start: 20130123, end: 20130327
  5. AVASTIN [Suspect]
     Active Substance: BEVACIZUMAB
     Dosage: UNK, MONTHLY
     Route: 042
     Dates: start: 20140326, end: 20150408
  6. PACLITAXEL HOSPIRA [Suspect]
     Active Substance: PACLITAXEL
     Indication: LUNG ADENOCARCINOMA
     Dosage: UNK UNK, CYCLIC (6 MG/ML)
     Route: 042
     Dates: start: 20131008, end: 20140212

REACTIONS (6)
  - Asthenia [Not Recovered/Not Resolved]
  - Dyspnoea [Not Recovered/Not Resolved]
  - Myalgia [Not Recovered/Not Resolved]
  - Tachycardia [Not Recovered/Not Resolved]
  - Cardiomyopathy [Not Recovered/Not Resolved]
  - Bundle branch block left [Not Recovered/Not Resolved]

NARRATIVE: CASE EVENT DATE: 20150317
